FAERS Safety Report 11474949 (Version 1)
Quarter: 2015Q3

REPORT INFORMATION
  Report Type: Spontaneous
  Country: US (occurrence: None)
  Receive Date: 20150908
  Receipt Date: 20150908
  Transmission Date: 20151125
  Serious: Yes (Hospitalization)
  Sender: FDA-Public Use
  Company Number: None

PATIENT
  Age: 61 Year
  Sex: Female

DRUGS (2)
  1. SIMVASTATIN. [Suspect]
     Active Substance: SIMVASTATIN
  2. CLONIDINE. [Suspect]
     Active Substance: CLONIDINE

REACTIONS (1)
  - Acute generalised exanthematous pustulosis [None]

NARRATIVE: CASE EVENT DATE: 20150512
